FAERS Safety Report 10496486 (Version 2)
Quarter: 2014Q4

REPORT INFORMATION
  Report Type: Spontaneous
  Country: ES (occurrence: ES)
  Receive Date: 20141004
  Receipt Date: 20141105
  Transmission Date: 20150528
  Serious: Yes (Other)
  Sender: FDA-Public Use
  Company Number: ES-AUROBINDO-AUR-APL-2014-10398

PATIENT
  Age: 61 Year
  Sex: Male

DRUGS (1)
  1. PIPERACILLIN AND TAZOBACTAM [Suspect]
     Active Substance: PIPERACILLIN SODIUM\TAZOBACTAM SODIUM
     Indication: PROPHYLAXIS
     Route: 065

REACTIONS (8)
  - Hypoxia [Recovered/Resolved]
  - Pyrexia [Recovered/Resolved]
  - Eosinophilic pneumonia acute [Recovered/Resolved]
  - Pulmonary eosinophilia [Recovered/Resolved]
  - Productive cough [Recovered/Resolved]
  - Dyspnoea [Recovered/Resolved]
  - Leukocytosis [Recovered/Resolved]
  - Respiratory failure [Recovered/Resolved]
